FAERS Safety Report 15855248 (Version 1)
Quarter: 2019Q1

REPORT INFORMATION
  Report Type: Spontaneous
  Country: FR (occurrence: FR)
  Receive Date: 20190122
  Receipt Date: 20190122
  Transmission Date: 20190417
  Serious: Yes (Other)
  Sender: FDA-Public Use
  Company Number: PHHY2019FR011989

PATIENT
  Age: 62 Year
  Sex: Female
  Weight: 64 kg

DRUGS (14)
  1. TERCIAN [Suspect]
     Active Substance: CYAMEMAZINE
     Indication: WRONG PATIENT RECEIVED PRODUCT
     Dosage: 100 MG, TOTAL
     Route: 048
     Dates: start: 20181123, end: 20181123
  2. LEPTICUR [Concomitant]
     Active Substance: TROPATEPINE HYDROCHLORIDE
     Indication: PRODUCT USED FOR UNKNOWN INDICATION
     Dosage: 10 MG, QD (LE MATIN)
     Route: 048
  3. PANTOPRAZOLE SODIUM. [Suspect]
     Active Substance: PANTOPRAZOLE SODIUM
     Indication: WRONG PATIENT RECEIVED PRODUCT
     Dosage: 20 MG, TOTAL (? 19 H)
     Route: 048
     Dates: start: 20181123, end: 20181123
  4. OROKEN [Suspect]
     Active Substance: CEFIXIME
     Indication: WRONG PATIENT RECEIVED PRODUCT
     Dosage: 200 MG, TOTAL (? 19 H)
     Route: 048
     Dates: start: 20181123, end: 20181123
  5. OLANZAPINE. [Suspect]
     Active Substance: OLANZAPINE
     Indication: WRONG PATIENT RECEIVED PRODUCT
     Dosage: 10 MG, TOTAL (? 19 H)
     Route: 048
     Dates: start: 20181123, end: 20181123
  6. TERCIAN [Concomitant]
     Active Substance: CYAMEMAZINE
     Indication: PRODUCT USED FOR UNKNOWN INDICATION
     Dosage: 1 DF, UNK (50 MG/5 ML)
     Route: 030
  7. LEPTICUR [Suspect]
     Active Substance: TROPATEPINE HYDROCHLORIDE
     Indication: WRONG PATIENT RECEIVED PRODUCT
     Dosage: 10 MG, TOTAL
     Route: 048
     Dates: start: 20181123, end: 20181123
  8. DEPAKOTE [Concomitant]
     Active Substance: DIVALPROEX SODIUM
     Indication: PRODUCT USED FOR UNKNOWN INDICATION
     Dosage: 500 MG, UNK (LE MATIN)
     Route: 048
  9. DEPAKOTE [Concomitant]
     Active Substance: DIVALPROEX SODIUM
     Dosage: 250 MG, QD (LE SOIR)
     Route: 048
  10. MOVICOL [Concomitant]
     Active Substance: POLYETHYLENE GLYCOL 3350\POTASSIUM CHLORIDE\SODIUM BICARBONATE\SODIUM CHLORIDE
     Indication: PRODUCT USED FOR UNKNOWN INDICATION
     Dosage: 2 DF, QD
     Route: 048
  11. DIFFU K [Concomitant]
     Active Substance: POTASSIUM CHLORIDE
     Indication: PRODUCT USED FOR UNKNOWN INDICATION
     Dosage: 1800 MG, QD
     Route: 048
  12. NEULEPTIL [Suspect]
     Active Substance: PERICIAZINE
     Indication: WRONG PATIENT RECEIVED PRODUCT
     Dosage: 50 MG, TOTAL (? 19 H)
     Route: 048
     Dates: start: 20181123, end: 20181123
  13. FORLAX [Suspect]
     Active Substance: POLYETHYLENE GLYCOL 4000
     Indication: WRONG PATIENT RECEIVED PRODUCT
     Dosage: 10 MG, TOTAL
     Route: 048
     Dates: start: 20181123, end: 20181123
  14. RISPERIDONE. [Concomitant]
     Active Substance: RISPERIDONE
     Indication: PRODUCT USED FOR UNKNOWN INDICATION
     Dosage: 4 MG, QD
     Route: 048

REACTIONS (2)
  - Hypotension [Recovered/Resolved with Sequelae]
  - Wrong patient received product [Recovered/Resolved]

NARRATIVE: CASE EVENT DATE: 20181123
